FAERS Safety Report 5158330-4 (Version None)
Quarter: 2006Q4

REPORT INFORMATION
  Report Type: 
  Country: None (occurrence: None)
  Receive Date: 20061121
  Receipt Date: 20061121
  Transmission Date: 20070319
  Serious: Yes (Life-Threatening, Hospitalization)
  Sender: FDA-Public Use
  Company Number: None

PATIENT
  Age: 85 Year
  Sex: Male

DRUGS (9)
  1. INTEGRILIN [Suspect]
     Indication: ACUTE MYOCARDIAL INFARCTION
     Dates: start: 20050805, end: 20060805
  2. LOVENOX [Concomitant]
  3. ZOSYN [Concomitant]
  4. AMIODARONE HCL [Concomitant]
  5. ASPIRIN [Concomitant]
  6. PEPCID [Concomitant]
  7. LOPRESSOR [Concomitant]
  8. LEVOPHED [Concomitant]
  9. PROPOFOL [Concomitant]

REACTIONS (2)
  - THROMBOCYTOPENIA [None]
  - UPPER GASTROINTESTINAL HAEMORRHAGE [None]
